FAERS Safety Report 22847654 (Version 2)
Quarter: 2023Q4

REPORT INFORMATION
  Report Type: Spontaneous
  Country: GB (occurrence: GB)
  Receive Date: 20230822
  Receipt Date: 20231201
  Transmission Date: 20240110
  Serious: Yes (Disabling, Other)
  Sender: FDA-Public Use
  Company Number: GB-MHRA-ADR 28101624

PATIENT
  Age: 34 Year
  Sex: Female

DRUGS (13)
  1. BUPIVACAINE HYDROCHLORIDE [Suspect]
     Active Substance: BUPIVACAINE HYDROCHLORIDE\BUPIVACAINE HYDROCHLORIDE ANHYDROUS
     Indication: Product used for unknown indication
     Dosage: UNK
     Route: 065
     Dates: start: 20230613
  2. DIAMORPHINE [Suspect]
     Active Substance: DIAMORPHINE
     Indication: Product used for unknown indication
     Dosage: UNK
     Route: 065
  3. FENTANYL [Suspect]
     Active Substance: FENTANYL\FENTANYL CITRATE
     Indication: Product used for unknown indication
     Dosage: UNK
     Route: 065
     Dates: start: 20230612
  4. FENTANYL [Suspect]
     Active Substance: FENTANYL\FENTANYL CITRATE
     Dosage: VIA PATIENT-CONTROLLED EPIDURAL ANALGESIA (PCEA) PUMP OVER 14 HOURS
     Route: 008
     Dates: start: 20230613
  5. LEVOBUPIVACAINE [Suspect]
     Active Substance: LEVOBUPIVACAINE
     Indication: Breakthrough pain
     Dosage: 3 MILLILITER
     Route: 008
     Dates: start: 20230612
  6. LEVOBUPIVACAINE [Suspect]
     Active Substance: LEVOBUPIVACAINE
     Dosage: 10 MILLILITER
     Route: 065
     Dates: start: 20230612
  7. LEVOBUPIVACAINE [Suspect]
     Active Substance: LEVOBUPIVACAINE
     Dosage: VIA PATIENT-CONTROLLED EPIDURAL ANALGESIA (PCEA) PUMP OVER 14 HOURS
     Route: 008
     Dates: start: 20230613
  8. AMOXICILLIN\CLAVULANATE POTASSIUM [Concomitant]
     Active Substance: AMOXICILLIN\CLAVULANATE POTASSIUM
     Indication: Product used for unknown indication
     Dosage: UNK
     Route: 065
  9. CEFUROXIME [Concomitant]
     Active Substance: CEFUROXIME
     Indication: Product used for unknown indication
     Dosage: UNK
     Route: 065
  10. DEXTROSE [Concomitant]
     Active Substance: DEXTROSE\DEXTROSE MONOHYDRATE
     Indication: Blood glucose decreased
     Dosage: UNK
     Route: 065
     Dates: start: 20230613
  11. METFORMIN [Concomitant]
     Active Substance: METFORMIN HYDROCHLORIDE
     Indication: Gestational diabetes
     Dosage: UNK
     Route: 065
  12. METRONIDAZOLE [Concomitant]
     Active Substance: METRONIDAZOLE
     Indication: Product used for unknown indication
     Dosage: UNK
     Route: 065
  13. ACETAMINOPHEN [Concomitant]
     Active Substance: ACETAMINOPHEN
     Indication: Pyrexia
     Dosage: 1 GRAM
     Route: 065
     Dates: start: 20230613

REACTIONS (6)
  - Arachnoiditis [Unknown]
  - Muscular weakness [Recovering/Resolving]
  - Motor dysfunction [Recovering/Resolving]
  - Nerve injury [Unknown]
  - Sensory loss [Recovering/Resolving]
  - Constipation [Unknown]
